FAERS Safety Report 19488533 (Version 2)
Quarter: 2021Q3

REPORT INFORMATION
  Report Type: Spontaneous
  Country: US (occurrence: US)
  Receive Date: 20210702
  Receipt Date: 20210802
  Transmission Date: 20211014
  Serious: Yes (Disabling, Other)
  Sender: FDA-Public Use
  Company Number: US-REGENERON PHARMACEUTICALS, INC.-2021-63369

PATIENT

DRUGS (2)
  1. EYLEA [Suspect]
     Active Substance: AFLIBERCEPT
     Indication: AGE-RELATED MACULAR DEGENERATION
     Dosage: 2 MG, Q6W
     Route: 031
     Dates: start: 202003
  2. EYLEA [Suspect]
     Active Substance: AFLIBERCEPT
     Indication: CHOROIDAL NEOVASCULARISATION
     Dosage: 2 MG, Q6W
     Route: 031
     Dates: start: 20210608, end: 20210608

REACTIONS (2)
  - Blindness [Not Recovered/Not Resolved]
  - Eye inflammation [Unknown]

NARRATIVE: CASE EVENT DATE: 20210614
